FAERS Safety Report 22089539 (Version 1)
Quarter: 2023Q1

REPORT INFORMATION
  Report Type: Spontaneous
  Country: US (occurrence: None)
  Receive Date: 20230311
  Receipt Date: 20230311
  Transmission Date: 20230417
  Serious: Yes (Disabling)
  Sender: FDA-Public Use
  Company Number: None

PATIENT
  Age: 66 Year
  Sex: Female
  Weight: 67.05 kg

DRUGS (1)
  1. TEPEZZA [Suspect]
     Active Substance: TEPROTUMUMAB-TRBW
     Indication: Endocrine ophthalmopathy
     Dosage: OTHER FREQUENCY : EVERY 3 WEEKS;?
     Route: 042

REACTIONS (10)
  - Deafness [None]
  - Tinnitus [None]
  - Gingival recession [None]
  - Tooth loss [None]
  - Onychoclasis [None]
  - Nail growth abnormal [None]
  - Alopecia [None]
  - Muscle spasms [None]
  - Bone loss [None]
  - Dental restoration failure [None]

NARRATIVE: CASE EVENT DATE: 20221101
